FAERS Safety Report 20652773 (Version 1)
Quarter: 2022Q1

REPORT INFORMATION
  Report Type: Report from Study
  Country: US (occurrence: US)
  Receive Date: 20220330
  Receipt Date: 20220330
  Transmission Date: 20220423
  Serious: Yes (Hospitalization)
  Sender: FDA-Public Use
  Company Number: US-Accord-258309

PATIENT
  Sex: Female
  Weight: 57.15 kg

DRUGS (1)
  1. CLOZAPINE [Suspect]
     Active Substance: CLOZAPINE
     Indication: Schizophrenia
     Dosage: 250MG/100MG IN EVENING
     Route: 048

REACTIONS (3)
  - Abnormal behaviour [Unknown]
  - Intentional self-injury [Unknown]
  - Treatment noncompliance [Unknown]
